APPROVED DRUG PRODUCT: IBRUTINIB
Active Ingredient: IBRUTINIB
Strength: 140MG
Dosage Form/Route: CAPSULE;ORAL
Application: A211344 | Product #002
Applicant: ZYDUS LIFESCIENCES GLOBAL FZE
Approved: Mar 31, 2021 | RLD: No | RS: No | Type: DISCN